FAERS Safety Report 22637332 (Version 1)
Quarter: 2023Q2

REPORT INFORMATION
  Report Type: Other
  Country: US (occurrence: None)
  Receive Date: 20230626
  Receipt Date: 20230626
  Transmission Date: 20230722
  Serious: Yes (Death)
  Sender: FDA-Public Use
  Company Number: US-ROCHE-3374747

PATIENT
  Age: 78 Year
  Sex: Male

DRUGS (13)
  1. IBRUTINIB [Suspect]
     Active Substance: IBRUTINIB
     Indication: Non-Hodgkin^s lymphoma
     Route: 048
     Dates: start: 202303
  2. SELINEXOR [Suspect]
     Active Substance: SELINEXOR
     Indication: Non-Hodgkin^s lymphoma
     Route: 065
     Dates: start: 20230408
  3. LENALIDOMIDE [Suspect]
     Active Substance: LENALIDOMIDE
     Indication: Non-Hodgkin^s lymphoma
     Route: 065
  4. RITUXIMAB [Suspect]
     Active Substance: RITUXIMAB
     Indication: Non-Hodgkin^s lymphoma
     Route: 065
     Dates: start: 20221228
  5. VENETOCLAX [Suspect]
     Active Substance: VENETOCLAX
     Indication: Non-Hodgkin^s lymphoma
     Route: 048
     Dates: start: 202303
  6. TAFASITAMAB-CXIX [Suspect]
     Active Substance: TAFASITAMAB-CXIX
     Indication: Non-Hodgkin^s lymphoma
     Route: 065
     Dates: start: 20221228
  7. CYCLOPHOSPHAMIDE [Concomitant]
     Active Substance: CYCLOPHOSPHAMIDE
     Indication: Product used for unknown indication
  8. PREDNISONE [Concomitant]
     Active Substance: PREDNISONE
  9. DOXORUBICIN HYDROCHLORIDE [Concomitant]
     Active Substance: DOXORUBICIN HYDROCHLORIDE
  10. GEMCITABINE [Concomitant]
     Active Substance: GEMCITABINE
  11. POLATUZUMAB VEDOTIN [Concomitant]
     Active Substance: POLATUZUMAB VEDOTIN
  12. BENDAMUSTINE [Concomitant]
     Active Substance: BENDAMUSTINE
  13. VINCRISTINE SULFATE [Concomitant]
     Active Substance: VINCRISTINE SULFATE

REACTIONS (1)
  - Diffuse large B-cell lymphoma [Fatal]

NARRATIVE: CASE EVENT DATE: 20230101
